FAERS Safety Report 7770710-7 (Version None)
Quarter: 2011Q3

REPORT INFORMATION
  Report Type: 
  Country: None (occurrence: None)
  Receive Date: 20110922
  Receipt Date: 20101201
  Transmission Date: 20111222
  Serious: No
  Sender: FDA-Public Use
  Company Number: US-ASTRAZENECA-2010SE57036

PATIENT
  Age: 64 Year
  Sex: Female

DRUGS (6)
  1. STELAZINE [Concomitant]
  2. SYNTHROID [Concomitant]
  3. SEROQUEL [Suspect]
     Indication: DEPRESSION
     Route: 048
     Dates: start: 20100801
  4. ZOLOFT [Concomitant]
  5. PRAVASTATIN [Concomitant]
  6. CARDIZEM [Concomitant]

REACTIONS (3)
  - BALANCE DISORDER [None]
  - SEDATION [None]
  - MUSCULOSKELETAL STIFFNESS [None]
